FAERS Safety Report 4423533-0 (Version None)
Quarter: 2004Q3

REPORT INFORMATION
  Report Type: 
  Country: None (occurrence: None)
  Receive Date: 20040805
  Receipt Date: 20040728
  Transmission Date: 20050211
  Serious: Yes (Death)
  Sender: FDA-Public Use
  Company Number: 04H-167-0268361-00

PATIENT
  Age: 47 Year
  Sex: Female

DRUGS (2)
  1. HEPARIN SODIUM [Suspect]
     Indication: PROPHYLAXIS
     Dosage: CONTINUOUS
     Route: 042
  2. PROPYLTHIOURACIL [Concomitant]

REACTIONS (9)
  - AORTIC OCCLUSION [None]
  - ARTERIAL INSUFFICIENCY [None]
  - HEPARIN-INDUCED THROMBOCYTOPENIA [None]
  - IMPAIRED HEALING [None]
  - LEG AMPUTATION [None]
  - PAIN IN EXTREMITY [None]
  - SEPSIS [None]
  - THROMBOSIS [None]
  - WOUND INFECTION [None]
